FAERS Safety Report 8540069-6 (Version None)
Quarter: 2012Q3

REPORT INFORMATION
  Report Type: 
  Country: None (occurrence: None)
  Receive Date: 20120726
  Receipt Date: 20070611
  Transmission Date: 20120928
  Serious: Yes (Other)
  Sender: FDA-Public Use
  Company Number: CO-PFIZER INC-2012179191

PATIENT
  Age: 70 Year
  Sex: Female

DRUGS (3)
  1. ACCURETIC [Suspect]
     Dosage: [QUINAPRIL HCL 20]/[HYDROCHLOROTHIAZIDE  12.5 MG], EVERY 24 HOURS
  2. LIPITOR [Suspect]
     Dosage: 10 MG EVERY 24 HOURS
  3. ACETYLSALICYLIC ACID [Concomitant]
     Dosage: 100 MG, 1X/DAY

REACTIONS (1)
  - HYPERTENSIVE EMERGENCY [None]
